FAERS Safety Report 5140522-1 (Version None)
Quarter: 2006Q4

REPORT INFORMATION
  Report Type: 
  Country: None (occurrence: None)
  Receive Date: 20061025
  Receipt Date: 20061016
  Transmission Date: 20070319
  Serious: Yes (Death)
  Sender: FDA-Public Use
  Company Number: E3810-00256-SPO-JP

PATIENT
  Age: 83 Year
  Sex: Female

DRUGS (11)
  1. RABEPRAZOLE SODIUM [Suspect]
     Indication: REFLUX OESOPHAGITIS
     Dosage: 10 MG, 1 IN 1 D, ORAL
     Route: 048
     Dates: start: 20060713, end: 20060901
  2. LASIX [Suspect]
     Indication: ASCITES
     Dosage: 20 MG, 1 IN 1 D
     Dates: start: 20060713, end: 20060901
  3. ALLOPURINOL [Suspect]
     Indication: HYPERURICAEMIA
     Dosage: 300 MG, 3 IN 1 D, ORAL
     Route: 048
     Dates: start: 20060713, end: 20060901
  4. ALDACTONE [Concomitant]
  5. URSO 250 [Concomitant]
  6. JUVELA N (TOCOPHERYL NICOTINATE) [Concomitant]
  7. LIVACT (LIVACT) [Concomitant]
  8. LAXOBERON (SODIUM PICOSULFATE) [Concomitant]
  9. FOLIC ACID [Concomitant]
  10. NICHIPHAGEN [Concomitant]
  11. TATHION (GLUTATHIONE) [Concomitant]

REACTIONS (15)
  - AGRANULOCYTOSIS [None]
  - ANAEMIA [None]
  - CONDITION AGGRAVATED [None]
  - DEPRESSED LEVEL OF CONSCIOUSNESS [None]
  - DISSEMINATED INTRAVASCULAR COAGULATION [None]
  - GASTROOESOPHAGEAL REFLUX DISEASE [None]
  - HEPATITIS C [None]
  - HIATUS HERNIA [None]
  - LIVER DISORDER [None]
  - OXYGEN SATURATION DECREASED [None]
  - PLATELET COUNT DECREASED [None]
  - PYREXIA [None]
  - RASH [None]
  - SEPSIS [None]
  - SOPOR [None]
